FAERS Safety Report 10259716 (Version 2)
Quarter: 2014Q2

REPORT INFORMATION
  Report Type: Spontaneous
  Country: DK (occurrence: DK)
  Receive Date: 20140625
  Receipt Date: 20140630
  Transmission Date: 20141212
  Serious: Yes (Hospitalization, Other)
  Sender: FDA-Public Use
  Company Number: DK-PFIZER INC-2014170933

PATIENT
  Age: 40 Year
  Sex: Female
  Weight: 65 kg

DRUGS (1)
  1. EFEXOR DEPOT [Suspect]
     Indication: DEPRESSION
     Dosage: DOSE: 300 MG, STRENGTH: 150 MG
     Route: 048

REACTIONS (1)
  - Abortion spontaneous [Unknown]
